FAERS Safety Report 7232407-1 (Version None)
Quarter: 2011Q1

REPORT INFORMATION
  Report Type: 
  Country: None (occurrence: None)
  Receive Date: 20110105
  Receipt Date: 20101222
  Transmission Date: 20110831
  Serious: Yes (Death, Hospitalization, Other)
  Sender: FDA-Public Use
  Company Number: 2010AC000339

PATIENT
  Age: 53 Year
  Sex: Female

DRUGS (10)
  1. METFORMIN [Concomitant]
  2. SYNTHROID [Concomitant]
  3. LYRICA [Concomitant]
  4. LANTUS [Concomitant]
  5. DIGOXIN [Suspect]
     Indication: CARDIAC FAILURE CONGESTIVE
     Dosage: 0.125 MG; QD; PO
     Route: 048
     Dates: start: 20060301, end: 20080601
  6. FENTANYL [Concomitant]
  7. TESTOSTERSONE [Concomitant]
  8. RHINOCORT [Concomitant]
  9. PREDNISONE [Concomitant]
  10. NEXIUM [Concomitant]

REACTIONS (15)
  - MULTIPLE INJURIES [None]
  - DIZZINESS [None]
  - CARDIAC FAILURE [None]
  - VISUAL IMPAIRMENT [None]
  - RESPIRATORY ARREST [None]
  - PAIN [None]
  - VOMITING [None]
  - CARDIAC DISORDER [None]
  - NAUSEA [None]
  - UNEVALUABLE EVENT [None]
  - ECONOMIC PROBLEM [None]
  - PNEUMONIA [None]
  - ANXIETY [None]
  - CONVULSION [None]
  - HYPOTENSION [None]
